FAERS Safety Report 25019864 (Version 5)
Quarter: 2025Q2

REPORT INFORMATION
  Report Type: Spontaneous
  Country: JP (occurrence: JP)
  Receive Date: 20250227
  Receipt Date: 20250418
  Transmission Date: 20250717
  Serious: Yes (Hospitalization, Other)
  Sender: MERCK SHARP & DOHME LLC
  Company Number: JP-MSD-2412JPN001774J

PATIENT
  Age: 55 Year
  Sex: Male

DRUGS (4)
  1. KEYTRUDA [Suspect]
     Active Substance: PEMBROLIZUMAB
     Indication: Lung squamous cell carcinoma stage III
     Dosage: 200 MG X 1/DAY (3 COURSES)
     Route: 041
     Dates: start: 202402, end: 202405
  2. CARBOPLATIN [Concomitant]
     Active Substance: CARBOPLATIN
     Indication: Lung squamous cell carcinoma stage III
     Route: 065
     Dates: start: 202310, end: 202401
  3. PACLITAXEL [Concomitant]
     Active Substance: PACLITAXEL
     Indication: Lung squamous cell carcinoma stage III
     Route: 065
     Dates: start: 202310, end: 202401
  4. SITAGLIPTIN PHOSPHATE [Concomitant]
     Active Substance: SITAGLIPTIN PHOSPHATE
     Indication: Type 2 diabetes mellitus
     Route: 065

REACTIONS (3)
  - Pneumonia aspiration [Recovering/Resolving]
  - Oesophageal-pulmonary fistula [Recovered/Resolved]
  - Inappropriate schedule of product administration [Unknown]

NARRATIVE: CASE EVENT DATE: 20240501
